FAERS Safety Report 18353033 (Version 4)
Quarter: 2020Q4

REPORT INFORMATION
  Report Type: Report from Study
  Country: None (occurrence: US)
  Receive Date: 20201007
  Receipt Date: 20201203
  Transmission Date: 20210114
  Serious: Yes (Death, Hospitalization, Other)
  Sender: FDA-Public Use
  Company Number: US-ABBVIE-20K-163-3562843-00

PATIENT
  Age: 88 Year
  Sex: Male
  Weight: 59.02 kg

DRUGS (1)
  1. HUMIRA [Suspect]
     Active Substance: ADALIMUMAB
     Indication: PSORIASIS
     Route: 058
     Dates: start: 20200529, end: 20200828

REACTIONS (2)
  - Pneumonia necrotising [Fatal]
  - Pneumonia [Unknown]

NARRATIVE: CASE EVENT DATE: 2020
